FAERS Safety Report 10151705 (Version 3)
Quarter: 2017Q4

REPORT INFORMATION
  Report Type: Report from Study
  Country: JP (occurrence: JP)
  Receive Date: 20140505
  Receipt Date: 20171026
  Transmission Date: 20180320
  Serious: Yes (Death, Hospitalization, Other)
  Sender: FDA-Public Use
  Company Number: JP-ROCHE-1390151

PATIENT
  Age: 56 Year
  Sex: Female
  Weight: 41 kg

DRUGS (4)
  1. LOBU [Concomitant]
     Active Substance: LOBUCAVIR
     Indication: ANALGESIC THERAPY
     Route: 048
  2. REBAMIPIDE [Concomitant]
     Active Substance: REBAMIPIDE
     Indication: ANALGESIC THERAPY
     Route: 048
  3. BEVACIZUMAB. [Suspect]
     Active Substance: BEVACIZUMAB
     Indication: BREAST CANCER METASTATIC
     Route: 041
     Dates: start: 20140318, end: 20140401
  4. PACLITAXEL. [Suspect]
     Active Substance: PACLITAXEL
     Indication: BREAST CANCER METASTATIC
     Dosage: MOST RECENT DOSE ON 01/APR/2014
     Route: 042
     Dates: start: 20140318

REACTIONS (11)
  - Hypertension [Not Recovered/Not Resolved]
  - Hepatic function abnormal [Not Recovered/Not Resolved]
  - Malaise [Not Recovered/Not Resolved]
  - Decreased appetite [Not Recovered/Not Resolved]
  - Diarrhoea [Not Recovered/Not Resolved]
  - Hypoaesthesia [Unknown]
  - Vomiting [Unknown]
  - Metastases to liver [Unknown]
  - Abdominal pain [Not Recovered/Not Resolved]
  - Metastases to lung [Unknown]
  - Breast cancer metastatic [Fatal]

NARRATIVE: CASE EVENT DATE: 20140318
